FAERS Safety Report 5097895-8 (Version None)
Quarter: 2006Q3

REPORT INFORMATION
  Report Type: 
  Country: None (occurrence: None)
  Receive Date: 20060905
  Receipt Date: 20060905
  Transmission Date: 20061208
  Serious: Yes (Other)
  Sender: FDA-Public Use
  Company Number: None

PATIENT
  Age: 62 Year
  Sex: Male
  Weight: 63.5036 kg

DRUGS (1)
  1. PLAVIX [Suspect]
     Indication: STENT PLACEMENT
     Dosage: 75 MG ONCE DAILY PO
     Route: 048
     Dates: start: 20060808, end: 20060831

REACTIONS (12)
  - BLOOD PRESSURE DECREASED [None]
  - CHILLS [None]
  - CORONARY ARTERY RESTENOSIS [None]
  - DIZZINESS [None]
  - FLUSHING [None]
  - HEADACHE [None]
  - HEART RATE INCREASED [None]
  - HYPOAESTHESIA [None]
  - PARAESTHESIA [None]
  - PYREXIA [None]
  - RASH [None]
  - TREMOR [None]
